FAERS Safety Report 24568145 (Version 10)
Quarter: 2025Q1

REPORT INFORMATION
  Report Type: Report from Study
  Country: DE (occurrence: DE)
  Receive Date: 20241031
  Receipt Date: 20250314
  Transmission Date: 20250408
  Serious: Yes (Hospitalization)
  Sender: JOHNSON AND JOHNSON
  Company Number: DE-JNJFOC-20241042762

PATIENT
  Age: 22 Year
  Sex: Female
  Weight: 114 kg

DRUGS (2)
  1. SPRAVATO [Suspect]
     Active Substance: ESKETAMINE
     Indication: Depression
     Route: 045
     Dates: start: 20240528, end: 20240530
  2. SPRAVATO [Suspect]
     Active Substance: ESKETAMINE
     Route: 045
     Dates: start: 20240604, end: 20241211

REACTIONS (6)
  - Tonsillitis [Recovered/Resolved]
  - Tonsillitis [Recovered/Resolved]
  - Post procedural haemorrhage [Recovered/Resolved]
  - Viral upper respiratory tract infection [Recovered/Resolved]
  - Restlessness [Recovered/Resolved]
  - Anxiety [Recovered/Resolved]

NARRATIVE: CASE EVENT DATE: 20240916
